FAERS Safety Report 12153106 (Version 1)
Quarter: 2016Q1

REPORT INFORMATION
  Report Type: Spontaneous
  Country: US (occurrence: US)
  Receive Date: 20160305
  Receipt Date: 20160305
  Transmission Date: 20160526
  Serious: No
  Sender: FDA-Public Use
  Company Number: US-JNJFOC-20160206707

PATIENT

DRUGS (3)
  1. SUDAFED 12 HOUR [Suspect]
     Active Substance: PSEUDOEPHEDRINE HYDROCHLORIDE
     Route: 063
  2. SUDAFED 12 HOUR [Suspect]
     Active Substance: PSEUDOEPHEDRINE HYDROCHLORIDE
     Indication: PRODUCT USED FOR UNKNOWN INDICATION
     Dosage: TOOK 2 CAPLETS OF COMBINED SUDAFED PE WITH SUDAFED 12HR IN THE BOX ??(MOTHER^S DOSING)
     Route: 063
  3. SUDAFED PE CONGESTION [Suspect]
     Active Substance: PHENYLEPHRINE HYDROCHLORIDE
     Indication: PRODUCT USED FOR UNKNOWN INDICATION
     Dosage: TOOK 2 CAPLETS OF COMBINED SUDAFED PE WITH SUDAFED 12HR IN THE BOX ??(MOTHER^S DOSING)
     Route: 063

REACTIONS (1)
  - Exposure during breast feeding [Unknown]
